FAERS Safety Report 9552431 (Version 1)
Quarter: 2013Q3

REPORT INFORMATION
  Report Type: Spontaneous
  Country: US (occurrence: None)
  Receive Date: 20130924
  Receipt Date: 20130924
  Transmission Date: 20140515
  Serious: No
  Sender: FDA-Public Use
  Company Number: None

PATIENT
  Age: 59 Year
  Sex: Female
  Weight: 68.04 kg

DRUGS (1)
  1. CLONIDINE [Suspect]
     Indication: MIGRAINE
     Dosage: 1 PATCH/ WK?APPLIED AS MEDICATED PATCH TO SKIN

REACTIONS (1)
  - Chemical injury [None]
